FAERS Safety Report 8862253 (Version 2)
Quarter: 2013Q4

REPORT INFORMATION
  Report Type: Spontaneous
  Country: CH (occurrence: CH)
  Receive Date: 20121026
  Receipt Date: 20131015
  Transmission Date: 20140711
  Serious: Yes (Other)
  Sender: FDA-Public Use
  Company Number: CH-JNJFOC-20121012105

PATIENT
  Age: 46 Year
  Sex: Female
  Weight: 70 kg

DRUGS (3)
  1. XARELTO [Suspect]
     Indication: EMBOLISM VENOUS
     Dosage: ONCE
     Route: 048
     Dates: start: 20121005
  2. XARELTO [Suspect]
     Indication: VENOUS THROMBOSIS LIMB
     Dosage: ONCE
     Route: 048
     Dates: start: 20121005
  3. CYMBALTA [Concomitant]
     Route: 065

REACTIONS (5)
  - Vertigo [Recovered/Resolved]
  - Orthostatic intolerance [Recovered/Resolved]
  - Nausea [Recovered/Resolved]
  - Vomiting [Recovered/Resolved]
  - Headache [Recovered/Resolved]
